FAERS Safety Report 20835317 (Version 1)
Quarter: 2022Q2

REPORT INFORMATION
  Report Type: Spontaneous
  Country: CO (occurrence: CO)
  Receive Date: 20220516
  Receipt Date: 20220516
  Transmission Date: 20220720
  Serious: Yes (Other)
  Sender: FDA-Public Use
  Company Number: CO-BAYER-2021A249955

PATIENT
  Age: 14 Year
  Sex: Female

DRUGS (1)
  1. LEVONORGESTREL [Suspect]
     Active Substance: LEVONORGESTREL
     Indication: Product used for unknown indication
     Route: 059
     Dates: start: 20210817

REACTIONS (4)
  - Genital haemorrhage [Unknown]
  - Headache [Unknown]
  - Decreased appetite [Unknown]
  - Abdominal pain [Unknown]
